FAERS Safety Report 9857900 (Version 2)
Quarter: 2014Q1

REPORT INFORMATION
  Report Type: Spontaneous
  Country: US (occurrence: US)
  Receive Date: 20140131
  Receipt Date: 20140211
  Transmission Date: 20141002
  Serious: Yes (Hospitalization, Disabling)
  Sender: FDA-Public Use
  Company Number: US-ASTRAZENECA-2014SE05478

PATIENT
  Age: 60 Year
  Sex: Male
  Weight: 49.4 kg

DRUGS (10)
  1. SYMBICORT [Suspect]
     Indication: EMPHYSEMA
     Dosage: 160/4.5 MCG, 2 INHALATIONS, TWO TIMES A DAY
     Route: 055
  2. SYMBICORT [Suspect]
     Indication: EMPHYSEMA
     Dosage: 60/4.5 MCG, 2 INHALATIONS BID
     Route: 055
  3. LISINOPRIL-HCTZ [Suspect]
     Indication: HYPERTENSION
     Dosage: LISINOPRIL 12.5 MG - HCTZ 20 MG, ONE TABLET DAILY
     Route: 048
  4. CLONIDINE [Suspect]
     Indication: HYPERTENSION
     Dosage: TWICE DAILY
     Route: 048
  5. CLONIDINE [Suspect]
     Indication: HYPERTENSION
     Route: 048
  6. PROAIR [Concomitant]
     Indication: EMPHYSEMA
     Dosage: 3 INHALATIONS DAILY
     Route: 055
  7. SPIRIVA [Concomitant]
     Indication: EMPHYSEMA
     Dosage: DAILY
     Dates: start: 2011
  8. PROVENTIL [Concomitant]
     Indication: EMPHYSEMA
  9. AIR SOLUTION [Concomitant]
     Indication: EMPHYSEMA
     Route: 055
  10. AMLODIPINE [Concomitant]
     Indication: HYPERTENSION
     Route: 048

REACTIONS (13)
  - Emphysema [Unknown]
  - Impaired work ability [Not Recovered/Not Resolved]
  - Dyspnoea [Unknown]
  - Speech disorder [Unknown]
  - Weight decreased [Not Recovered/Not Resolved]
  - Hypophagia [Unknown]
  - Malaise [Unknown]
  - Somnolence [Unknown]
  - Hypotension [Unknown]
  - Dizziness [Unknown]
  - Insomnia [Unknown]
  - Circumstance or information capable of leading to medication error [Unknown]
  - Drug dose omission [Unknown]
